FAERS Safety Report 9500278 (Version 1)
Quarter: 2013Q3

REPORT INFORMATION
  Report Type: Report from Study
  Country: US (occurrence: US)
  Receive Date: 20130905
  Receipt Date: 20130905
  Transmission Date: 20140515
  Serious: Yes (Hospitalization)
  Sender: FDA-Public Use
  Company Number: US-ABBOTT-13P-163-1141318-00

PATIENT
  Age: 21 Year
  Sex: Female

DRUGS (3)
  1. HUMIRA [Suspect]
     Indication: CROHN^S DISEASE
     Dates: start: 20130711
  2. PREDNISONE [Concomitant]
     Indication: CROHN^S DISEASE
     Dosage: FOR THE LAST 4 MONTHS
  3. CELEXA [Concomitant]
     Indication: ANTIDEPRESSANT THERAPY

REACTIONS (1)
  - Small intestinal obstruction [Recovered/Resolved]
